FAERS Safety Report 9871599 (Version 1)
Quarter: 2014Q1

REPORT INFORMATION
  Report Type: Report from Study
  Country: AR (occurrence: AR)
  Receive Date: 20140205
  Receipt Date: 20140205
  Transmission Date: 20141002
  Serious: Yes (Hospitalization)
  Sender: FDA-Public Use
  Company Number: AR-MYLANLABS-2014S1001716

PATIENT
  Age: 68 Year
  Sex: Male

DRUGS (7)
  1. ABIRATERONE [Suspect]
     Indication: PROSTATE CANCER METASTATIC
     Dosage: 1G DAILY
     Route: 065
  2. PREDNISOLONE [Suspect]
     Route: 065
  3. LEUPRORELIN [Concomitant]
     Route: 065
  4. DICLOFENAC [Concomitant]
     Route: 065
  5. COLECALCIFEROL [Concomitant]
     Route: 065
  6. CALCIUM [Concomitant]
     Route: 065
  7. ZOLEDRONIC ACID [Concomitant]
     Route: 065

REACTIONS (2)
  - Thrombocytopenia [Recovered/Resolved]
  - Anaemia [Unknown]
